FAERS Safety Report 9100536 (Version 1)
Quarter: 2013Q1

REPORT INFORMATION
  Report Type: Spontaneous
  Country: DE (occurrence: DE)
  Receive Date: 20130215
  Receipt Date: 20130215
  Transmission Date: 20140127
  Serious: Yes (Other)
  Sender: FDA-Public Use
  Company Number: DE-PFIZER INC-2013009956

PATIENT
  Age: 84 Year
  Sex: Female

DRUGS (1)
  1. TOVIAZ [Suspect]
     Dosage: 1 DF, UNK
     Route: 048

REACTIONS (2)
  - Cardiac failure [Recovered/Resolved]
  - Oedema peripheral [Recovered/Resolved]
